FAERS Safety Report 10761001 (Version 1)
Quarter: 2015Q1

REPORT INFORMATION
  Report Type: Other
  Country: CZ (occurrence: CZ)
  Receive Date: 20150204
  Receipt Date: 20150204
  Transmission Date: 20150721
  Serious: Yes (Hospitalization)
  Sender: FDA-Public Use
  Company Number: CZ-LUPIN PHARMACEUTICALS INC.-2014-01880

PATIENT
  Age: 26 Year
  Sex: Female

DRUGS (2)
  1. TRIMETHOPRIM/SULPHAMETHOXASOL [Suspect]
     Active Substance: SULFAMETHOXAZOLE\TRIMETHOPRIM
     Indication: PHARYNGITIS
     Dosage: 20 MG/100MG
     Route: 065
  2. TOPIRAMATE. [Suspect]
     Active Substance: TOPIRAMATE
     Indication: MIGRAINE PROPHYLAXIS

REACTIONS (1)
  - Myopia [Recovered/Resolved]
